FAERS Safety Report 10204758 (Version 1)
Quarter: 2014Q2

REPORT INFORMATION
  Report Type: Spontaneous
  Country: NL (occurrence: NL)
  Receive Date: 20140529
  Receipt Date: 20140529
  Transmission Date: 20141212
  Serious: Yes (Life-Threatening, Hospitalization)
  Sender: FDA-Public Use
  Company Number: NL-ASTRAZENECA-2014SE36225

PATIENT
  Age: 63 Year
  Sex: Female
  Weight: 80 kg

DRUGS (7)
  1. CRESTOR [Suspect]
     Indication: DIABETES MELLITUS
     Route: 048
     Dates: start: 2012
  2. BETMIGA [Interacting]
     Indication: URINARY INCONTINENCE
     Route: 048
     Dates: start: 20140507, end: 20140513
  3. JANUMET [Interacting]
     Indication: DIABETES MELLITUS
     Dosage: 50MG/ 850MG
     Route: 048
     Dates: start: 2012, end: 20140512
  4. VALSARTAN/HYDROCHLOORTHIAZIDE [Interacting]
     Indication: HYPERTENSION
     Dosage: 160/12.5 MG, 1 DF DAILY
     Route: 048
     Dates: start: 2012, end: 20140512
  5. BARNIDIPINE [Interacting]
     Indication: HYPERTENSION
     Route: 048
     Dates: start: 2012, end: 20140512
  6. BISOPROLOL [Interacting]
     Indication: HYPERTENSION
     Route: 048
     Dates: start: 2012
  7. BISOPROLOL [Interacting]
     Indication: HYPERTENSION
     Route: 048
     Dates: start: 2012, end: 20140512

REACTIONS (5)
  - Drug interaction [Recovered/Resolved]
  - Lactic acidosis [Recovered/Resolved]
  - Renal failure [Recovering/Resolving]
  - Urosepsis [Recovered/Resolved]
  - Blood creatine phosphokinase increased [Recovered/Resolved]
